FAERS Safety Report 7238290-2 (Version None)
Quarter: 2011Q1

REPORT INFORMATION
  Report Type: 
  Country: None (occurrence: None)
  Receive Date: 20110121
  Receipt Date: 20110112
  Transmission Date: 20110831
  Serious: Yes (Hospitalization)
  Sender: FDA-Public Use
  Company Number: US-ASTRAZENECA-2011SE02059

PATIENT
  Age: 52 Year
  Sex: Male
  Weight: 78.5 kg

DRUGS (6)
  1. SEROQUEL XR [Suspect]
     Route: 048
     Dates: start: 20110101
  2. SEROQUEL XR [Suspect]
     Indication: POST-TRAUMATIC STRESS DISORDER
     Route: 048
     Dates: start: 20100426, end: 20110101
  3. SEROQUEL XR [Suspect]
     Route: 048
     Dates: start: 20110101
  4. SEROQUEL XR [Suspect]
     Indication: BIPOLAR I DISORDER
     Route: 048
     Dates: start: 20100426, end: 20110101
  5. SEROQUEL XR [Suspect]
     Route: 048
     Dates: start: 20110101
  6. SEROQUEL XR [Suspect]
     Route: 048
     Dates: start: 20100426, end: 20110101

REACTIONS (13)
  - BLOOD PRESSURE INCREASED [None]
  - RESTLESSNESS [None]
  - RESTLESS LEGS SYNDROME [None]
  - HEART RATE INCREASED [None]
  - SCREAMING [None]
  - ALOPECIA [None]
  - CONFUSIONAL STATE [None]
  - MUSCULAR WEAKNESS [None]
  - HEADACHE [None]
  - NIGHTMARE [None]
  - GRAND MAL CONVULSION [None]
  - THROMBOCYTOSIS [None]
  - AMNESIA [None]
